FAERS Safety Report 25773999 (Version 2)
Quarter: 2025Q4

REPORT INFORMATION
  Report Type: Report from Study
  Country: JP (occurrence: JP)
  Receive Date: 20250908
  Receipt Date: 20251231
  Transmission Date: 20260117
  Serious: Yes (Life-Threatening, Hospitalization, Other)
  Sender: CSL BEHRING
  Company Number: JP-BEH-2025217692

PATIENT
  Age: 15 Month
  Sex: Female
  Weight: 7.5 kg

DRUGS (30)
  1. BERINERT [Suspect]
     Active Substance: HUMAN C1-ESTERASE INHIBITOR
     Indication: Hereditary angioedema
     Dosage: 1.2 ML, BIW
     Route: 058
     Dates: start: 20221227, end: 20230825
  2. BERINERT [Suspect]
     Active Substance: HUMAN C1-ESTERASE INHIBITOR
     Indication: Prophylaxis
     Dosage: 1.2 ML, QD
     Route: 058
     Dates: start: 20230829, end: 20230831
  3. BERINERT [Suspect]
     Active Substance: HUMAN C1-ESTERASE INHIBITOR
     Dosage: 1.2 ML, BIW
     Route: 058
     Dates: start: 20230902, end: 20230929
  4. BERINERT [Suspect]
     Active Substance: HUMAN C1-ESTERASE INHIBITOR
     Dosage: 1.2 ML, QD
     Route: 058
     Dates: start: 20231004, end: 20231006
  5. BERINERT [Suspect]
     Active Substance: HUMAN C1-ESTERASE INHIBITOR
     Dosage: 1.2 ML, BIW
     Route: 058
     Dates: start: 20231009, end: 20231124
  6. BERINERT [Suspect]
     Active Substance: HUMAN C1-ESTERASE INHIBITOR
     Dosage: 1.2 ML, QD
     Route: 058
     Dates: start: 20231130, end: 20231201
  7. BERINERT [Suspect]
     Active Substance: HUMAN C1-ESTERASE INHIBITOR
     Dosage: 1.2 ML, BIW
     Route: 058
     Dates: start: 20231205
  8. BERINERT [Suspect]
     Active Substance: HUMAN C1-ESTERASE INHIBITOR
     Indication: Hereditary angioedema
     Dosage: 4 ML
     Route: 042
  9. BERINERT [Suspect]
     Active Substance: HUMAN C1-ESTERASE INHIBITOR
     Indication: Hereditary angioedema
     Dosage: 4 ML
     Route: 042
  10. BERINERT [Suspect]
     Active Substance: HUMAN C1-ESTERASE INHIBITOR
     Dosage: 4 ML
     Route: 042
  11. BERINERT [Suspect]
     Active Substance: HUMAN C1-ESTERASE INHIBITOR
     Dosage: 4 ML
     Route: 042
  12. TRANEXAMIC ACID [Concomitant]
     Active Substance: TRANEXAMIC ACID
     Indication: Hereditary angioedema
     Dosage: 250 MG
     Route: 048
     Dates: end: 20230207
  13. TRANEXAMIC ACID [Concomitant]
     Active Substance: TRANEXAMIC ACID
     Indication: Prophylaxis
     Dosage: 200 MG
     Route: 042
     Dates: end: 20230827
  14. TRANEXAMIC ACID [Concomitant]
     Active Substance: TRANEXAMIC ACID
     Indication: Lip oedema
     Dosage: 255 MG
     Route: 048
     Dates: start: 20230208, end: 20230830
  15. TRANEXAMIC ACID [Concomitant]
     Active Substance: TRANEXAMIC ACID
     Indication: Eyelid oedema
     Dosage: 250 MG
     Route: 042
  16. TRANEXAMIC ACID [Concomitant]
     Active Substance: TRANEXAMIC ACID
     Indication: Vulval oedema
     Dosage: 300 MG
     Route: 048
     Dates: start: 20230831
  17. TRANEXAMIC ACID [Concomitant]
     Active Substance: TRANEXAMIC ACID
     Indication: Abdominal distension
     Dosage: UNK
     Route: 042
  18. TRANEXAMIC ACID [Concomitant]
     Active Substance: TRANEXAMIC ACID
     Indication: Diarrhoea
  19. TRANEXAMIC ACID [Concomitant]
     Active Substance: TRANEXAMIC ACID
     Indication: Vulvovaginal swelling
  20. TRANEXAMIC ACID [Concomitant]
     Active Substance: TRANEXAMIC ACID
     Indication: Cough
  21. FIRAZYR [Concomitant]
     Active Substance: ICATIBANT ACETATE
     Indication: Hereditary angioedema
     Dosage: 1 MG
     Route: 058
     Dates: start: 20230602
  22. FIRAZYR [Concomitant]
     Active Substance: ICATIBANT ACETATE
     Indication: Prophylaxis
     Dosage: UNK
     Route: 058
  23. FIRAZYR [Concomitant]
     Active Substance: ICATIBANT ACETATE
     Indication: Lip oedema
  24. FIRAZYR [Concomitant]
     Active Substance: ICATIBANT ACETATE
     Indication: Eyelid oedema
  25. FIRAZYR [Concomitant]
     Active Substance: ICATIBANT ACETATE
     Indication: Vulval oedema
  26. FIRAZYR [Concomitant]
     Active Substance: ICATIBANT ACETATE
     Indication: Abdominal distension
  27. FIRAZYR [Concomitant]
     Active Substance: ICATIBANT ACETATE
     Indication: Diarrhoea
  28. FIRAZYR [Concomitant]
     Active Substance: ICATIBANT ACETATE
     Indication: Erythema of eyelid
  29. FIRAZYR [Concomitant]
     Active Substance: ICATIBANT ACETATE
     Indication: Vulvovaginal swelling
  30. FIRAZYR [Concomitant]
     Active Substance: ICATIBANT ACETATE
     Indication: Cough

REACTIONS (35)
  - Hereditary angioedema [Recovered/Resolved]
  - Lip oedema [Recovered/Resolved]
  - Eyelid oedema [Recovered/Resolved]
  - Vulval oedema [Recovered/Resolved]
  - Abdominal distension [Recovered/Resolved]
  - Hereditary angioedema [Recovered/Resolved]
  - Abdominal distension [Recovered/Resolved]
  - Hereditary angioedema [Recovered/Resolved]
  - Diarrhoea [Recovered/Resolved]
  - Face oedema [Recovered/Resolved]
  - Vulval oedema [Recovered/Resolved]
  - Hereditary angioedema [Recovered/Resolved]
  - Vulval oedema [Recovered/Resolved]
  - Diarrhoea [Recovered/Resolved]
  - Hereditary angioedema [Recovered/Resolved]
  - Eyelid oedema [Recovered/Resolved]
  - Lip oedema [Recovered/Resolved]
  - Hereditary angioedema [Recovered/Resolved]
  - Eyelid oedema [Recovered/Resolved]
  - Hereditary angioedema [Recovered/Resolved]
  - Eyelid oedema [Recovered/Resolved]
  - Abdominal distension [Recovered/Resolved]
  - Hereditary angioedema [Recovered/Resolved]
  - Erythema of eyelid [Recovered/Resolved]
  - Hereditary angioedema [Recovered/Resolved]
  - Eyelid oedema [Recovered/Resolved]
  - Abdominal distension [Recovered/Resolved]
  - Vulvovaginal swelling [Recovered/Resolved]
  - Cough [Recovered/Resolved]
  - Infection [Unknown]
  - Gastroenteritis [Recovered/Resolved]
  - Diarrhoea [Recovered/Resolved]
  - Diarrhoea [Recovered/Resolved]
  - Vomiting [Recovered/Resolved]
  - Off label use [Unknown]

NARRATIVE: CASE EVENT DATE: 20230601
